FAERS Safety Report 22305100 (Version 1)
Quarter: 2023Q2

REPORT INFORMATION
  Report Type: Spontaneous
  Country: US (occurrence: None)
  Receive Date: 20230509
  Receipt Date: 20230509
  Transmission Date: 20230721
  Serious: No
  Sender: FDA-Public Use
  Company Number: None

PATIENT
  Age: 63 Year
  Sex: Female
  Weight: 72.57 kg

DRUGS (1)
  1. STELARA [Suspect]
     Active Substance: USTEKINUMAB
     Indication: Psoriasis
     Dosage: INJECT 45MG SUBCUTANEOUSLY EVERY 12 WEEKS AS DIRECTED.
     Route: 058
     Dates: start: 202001

REACTIONS (2)
  - Abscess [None]
  - Cyst [None]
